FAERS Safety Report 24567263 (Version 1)
Quarter: 2024Q4

REPORT INFORMATION
  Report Type: Spontaneous
  Country: FR (occurrence: FR)
  Receive Date: 20241030
  Receipt Date: 20241030
  Transmission Date: 20250114
  Serious: Yes (Other)
  Sender: ABBVIE
  Company Number: FR-PFIZER INC-202400259605

PATIENT
  Age: 22 Year
  Sex: Female
  Weight: 54 kg

DRUGS (3)
  1. ADALIMUMAB [Suspect]
     Active Substance: ADALIMUMAB
     Indication: Crohn^s disease
     Dosage: UNK
     Route: 058
     Dates: start: 2015
  2. ENTYVIO [Concomitant]
     Active Substance: VEDOLIZUMAB
     Indication: Product used for unknown indication
     Dosage: UNK
     Dates: start: 202102
  3. STELARA [Concomitant]
     Active Substance: USTEKINUMAB
     Indication: Product used for unknown indication

REACTIONS (12)
  - Large intestinal stenosis [Unknown]
  - Drug intolerance [Unknown]
  - Diarrhoea [Unknown]
  - Lymphadenopathy [Unknown]
  - Colitis microscopic [Unknown]
  - Large intestinal ulcer [Unknown]
  - Abdominal pain [Unknown]
  - Faecal calprotectin increased [Unknown]
  - Maternal exposure during pregnancy [Unknown]
  - Anal fistula [Recovered/Resolved]
  - Drug ineffective [Unknown]
  - Ulcer [Unknown]

NARRATIVE: CASE EVENT DATE: 20210101
